FAERS Safety Report 9527121 (Version 1)
Quarter: 2013Q3

REPORT INFORMATION
  Report Type: Spontaneous
  Country: US (occurrence: US)
  Receive Date: 20130916
  Receipt Date: 20130916
  Transmission Date: 20140515
  Serious: Yes (Other)
  Sender: FDA-Public Use
  Company Number: US-B.I. PHARMACEUTICALS,INC./RIDGEFIELD-2013-BI-28223BP

PATIENT
  Sex: Female

DRUGS (2)
  1. COMBIVENT [Suspect]
     Indication: CHRONIC OBSTRUCTIVE PULMONARY DISEASE
  2. PROAIR HFA [Suspect]
     Indication: CHRONIC OBSTRUCTIVE PULMONARY DISEASE
     Dosage: FORMULATION: INHALATION VAPOUR

REACTIONS (2)
  - Urinary tract infection [Not Recovered/Not Resolved]
  - Escherichia urinary tract infection [Not Recovered/Not Resolved]
